FAERS Safety Report 10226652 (Version 1)
Quarter: 2014Q2

REPORT INFORMATION
  Report Type: Spontaneous
  Country: VE (occurrence: VE)
  Receive Date: 20140609
  Receipt Date: 20140609
  Transmission Date: 20141212
  Serious: Yes (Hospitalization)
  Sender: FDA-Public Use
  Company Number: PHHY2014VE070425

PATIENT
  Age: 40 Year
  Sex: Female

DRUGS (1)
  1. TEGRETOL [Suspect]
     Indication: CONVULSION
     Dosage: UNK UKN, DAILY
     Route: 048
     Dates: start: 1987, end: 20140527

REACTIONS (1)
  - Convulsion [Not Recovered/Not Resolved]
